FAERS Safety Report 8225743 (Version 6)
Quarter: 2014Q1

REPORT INFORMATION
  Report Type: Report from Study
  Country: US (occurrence: US)
  Receive Date: 20111103
  Receipt Date: 20140226
  Transmission Date: 20141002
  Serious: Yes (Hospitalization)
  Sender: FDA-Public Use
  Company Number: US-JNJFOC-20111012221

PATIENT
  Age: 11 Year
  Sex: Female
  Weight: 36.6 kg

DRUGS (21)
  1. INFLIXIMAB, RECOMBINANT [Suspect]
     Indication: INFLAMMATORY BOWEL DISEASE
     Route: 042
     Dates: start: 20080205, end: 20090114
  2. HUMIRA [Suspect]
     Indication: PRODUCT USED FOR UNKNOWN INDICATION
     Dates: start: 20090218, end: 201110
  3. METHOTREXATE [Suspect]
     Indication: PRODUCT USED FOR UNKNOWN INDICATION
  4. PREDNISONE [Suspect]
     Indication: PRODUCT USED FOR UNKNOWN INDICATION
  5. HYDROCORTISONE [Suspect]
     Indication: PRODUCT USED FOR UNKNOWN INDICATION
  6. ANTIBIOTICS [Concomitant]
     Indication: INFLAMMATORY BOWEL DISEASE
  7. PEPTAMEN [Concomitant]
  8. FOLIC ACID [Concomitant]
  9. PREVACID [Concomitant]
  10. CHOLECALCIFEROL [Concomitant]
  11. A MULTIVITAMIN [Concomitant]
  12. FISH OIL [Concomitant]
  13. MORPHINE [Concomitant]
  14. NALBUPHINE [Concomitant]
  15. RANITIDINE [Concomitant]
  16. CEFTRIAXONE [Concomitant]
  17. LORAZEPAM [Concomitant]
  18. ACETAMINOPHEN [Concomitant]
  19. KETOROLAC [Concomitant]
  20. BISACODYL [Concomitant]
  21. ONDANSETRON [Concomitant]

REACTIONS (2)
  - Intestinal stenosis [Recovered/Resolved]
  - Anastomotic leak [Recovered/Resolved]
